FAERS Safety Report 6566900-1 (Version None)
Quarter: 2010Q1

REPORT INFORMATION
  Report Type: 
  Country: None (occurrence: None)
  Receive Date: 20100202
  Receipt Date: 20100122
  Transmission Date: 20100710
  Serious: Yes (Death, Hospitalization, Other)
  Sender: FDA-Public Use
  Company Number: JM-SANOFI-AVENTIS-2010SA005509

PATIENT

DRUGS (3)
  1. GLIBENCLAMIDE [Suspect]
  2. METFORMIN HCL [Suspect]
  3. CEFTRIAXONE [Suspect]

REACTIONS (26)
  - ANAEMIA [None]
  - CONJUNCTIVITIS [None]
  - CORNEAL ABRASION [None]
  - CUTANEOUS VASCULITIS [None]
  - DERMATITIS BULLOUS [None]
  - DERMATITIS EXFOLIATIVE [None]
  - DRUG ERUPTION [None]
  - ERYTHEMA MULTIFORME [None]
  - GASTRITIS [None]
  - GENITAL LABIAL ADHESIONS [None]
  - GLUCOSE TOLERANCE IMPAIRED [None]
  - HAEMATURIA [None]
  - HEPATITIS [None]
  - HYPERTENSION [None]
  - HYPOKALAEMIA [None]
  - HYPONATRAEMIA [None]
  - PANCYTOPENIA [None]
  - RENAL IMPAIRMENT [None]
  - SERUM SICKNESS-LIKE REACTION [None]
  - SKIN DISCOLOURATION [None]
  - SKIN REACTION [None]
  - STEVENS-JOHNSON SYNDROME [None]
  - SYMBLEPHARON [None]
  - THROMBOCYTOPENIA [None]
  - TOXIC EPIDERMAL NECROLYSIS [None]
  - URTICARIA [None]
